FAERS Safety Report 19727207 (Version 1)
Quarter: 2021Q3

REPORT INFORMATION
  Report Type: Spontaneous
  Country: US (occurrence: US)
  Receive Date: 20210819
  Receipt Date: 20210819
  Transmission Date: 20211014
  Serious: Yes (Hospitalization)
  Sender: FDA-Public Use
  Company Number: None

PATIENT
  Age: 7 Year
  Sex: Female

DRUGS (1)
  1. LUPRON DEPOT?PED [Suspect]
     Active Substance: LEUPROLIDE ACETATE
     Indication: PRECOCIOUS PUBERTY
     Dosage: ?          OTHER FREQUENCY:3 MONTHS ;?
     Route: 041
     Dates: start: 20210413

REACTIONS (3)
  - Hot flush [None]
  - Heart rate increased [None]
  - Lethargy [None]

NARRATIVE: CASE EVENT DATE: 20210414
